FAERS Safety Report 15366069 (Version 1)
Quarter: 2018Q3

REPORT INFORMATION
  Report Type: Spontaneous
  Country: GB (occurrence: GB)
  Receive Date: 20180910
  Receipt Date: 20180910
  Transmission Date: 20181010
  Serious: Yes (Other)
  Sender: FDA-Public Use
  Company Number: GB-LEXICON PHARMACEUTICALS, INC-18-1606-01101

PATIENT
  Age: 39 Year
  Sex: Male

DRUGS (2)
  1. IPTR LUTETIUM [Concomitant]
  2. TELOTRISTAT ETHYL [Suspect]
     Active Substance: TELOTRISTAT ETHYL
     Indication: PRODUCT USED FOR UNKNOWN INDICATION
     Route: 048
     Dates: start: 201801

REACTIONS (1)
  - Mitral valve incompetence [Unknown]

NARRATIVE: CASE EVENT DATE: 201804
